FAERS Safety Report 5192725-8 (Version None)
Quarter: 2006Q4

REPORT INFORMATION
  Report Type: 
  Country: None (occurrence: None)
  Receive Date: 20061228
  Receipt Date: 20061011
  Transmission Date: 20070319
  Serious: Yes (Death, Hospitalization, Other)
  Sender: FDA-Public Use
  Company Number: PHEH2006US12795

PATIENT
  Age: 80 Year
  Sex: Male
  Weight: 71 kg

DRUGS (13)
  1. DABIGATRAN ETEXILATE [Suspect]
     Dosage: UNK, UNK
     Dates: start: 20041011, end: 20060922
  2. DABIGATRAN ETEXILATE [Suspect]
     Dosage: UNK, UNK
     Dates: start: 20060925, end: 20060926
  3. CARDIZEM [Suspect]
     Dosage: UNK, UNK
  4. NORVASC [Suspect]
     Dosage: UNK, UNK
  5. POTASSIUM ACETATE [Suspect]
     Dosage: UNK, UNK
  6. DIOVAN [Suspect]
     Indication: HYPERTENSION
     Dosage: UNK, UNK
     Dates: end: 20060923
  7. DIOVAN [Suspect]
     Dates: start: 20060925, end: 20060927
  8. GLUCOPHAGE [Concomitant]
     Indication: DIABETES MELLITUS
     Dosage: UNK, UNK
  9. PREDNISONE TAB [Concomitant]
     Dosage: UNK, UNK
  10. ATENOLOL [Concomitant]
     Dosage: UNK, UNK
  11. LIPITOR [Concomitant]
     Dosage: UNK, UNK
  12. ALEVE [Concomitant]
     Dosage: UNK, UNK
  13. TORSEMIDE [Concomitant]
     Dosage: UNK, UNK

REACTIONS (20)
  - ABDOMINAL DISTENSION [None]
  - ABDOMINAL PAIN UPPER [None]
  - ASTHENIA [None]
  - BRADYCARDIA [None]
  - CARDIO-RESPIRATORY ARREST [None]
  - CHRONIC OBSTRUCTIVE PULMONARY DISEASE [None]
  - CONDITION AGGRAVATED [None]
  - DYSPNOEA [None]
  - GASTROINTESTINAL HAEMORRHAGE [None]
  - GASTROOESOPHAGEAL REFLUX DISEASE [None]
  - HAEMATEMESIS [None]
  - HAEMATOCHEZIA [None]
  - HYPERKALAEMIA [None]
  - HYPOTENSION [None]
  - INTUBATION [None]
  - PNEUMONIA [None]
  - RENAL FAILURE ACUTE [None]
  - RESUSCITATION [None]
  - ULCER [None]
  - ULTRASOUND ABDOMEN ABNORMAL [None]
